FAERS Safety Report 7655284-3 (Version None)
Quarter: 2011Q3

REPORT INFORMATION
  Report Type: 
  Country: None (occurrence: None)
  Receive Date: 20110801
  Receipt Date: 20110714
  Transmission Date: 20111222
  Serious: Yes (Other)
  Sender: FDA-Public Use
  Company Number: 2011MA008874

PATIENT
  Age: 71 Year
  Sex: Female

DRUGS (2)
  1. INDAPAMIDE [Suspect]
  2. CARBAMAZEPINE [Suspect]

REACTIONS (1)
  - HYPONATRAEMIA [None]
